FAERS Safety Report 5292133-5 (Version None)
Quarter: 2007Q2

REPORT INFORMATION
  Report Type: 
  Country: None (occurrence: None)
  Receive Date: 20070410
  Receipt Date: 20070404
  Transmission Date: 20071010
  Serious: Yes (Hospitalization)
  Sender: FDA-Public Use
  Company Number: 2006125946

PATIENT
  Age: 63 Year
  Sex: Female
  Weight: 65.8 kg

DRUGS (18)
  1. FLOLAN [Suspect]
     Route: 042
     Dates: start: 20031106
  2. SILDENAFIL CITRATE [Suspect]
     Indication: PULMONARY HYPERTENSION
     Dosage: 80MG THREE TIMES PER DAY
     Route: 048
     Dates: start: 20050425
  3. NEURONTIN [Concomitant]
     Indication: NEUROFIBROMATOSIS
     Dosage: 400MG THREE TIMES PER DAY
     Route: 048
  4. FUROSEMIDE [Concomitant]
     Indication: PULMONARY HYPERTENSION
     Dosage: 40MG TWICE PER DAY
     Route: 048
  5. POTASSIUM ACETATE [Concomitant]
     Dosage: 10MEQ PER DAY
     Route: 048
     Dates: start: 20030201
  6. ESCITALOPRAM [Concomitant]
     Indication: DEPRESSION
     Dosage: 20MEQ PER DAY
     Route: 048
     Dates: start: 20030101
  7. CETIRIZINE HCL [Concomitant]
     Indication: SEASONAL ALLERGY
     Dosage: 10MG PER DAY
     Route: 048
     Dates: start: 20020101
  8. MONTELUKAST SODIUM [Concomitant]
     Indication: ASTHMA
     Dosage: 10MG PER DAY
     Route: 048
     Dates: start: 20030101
  9. ATORVASTATIN CALCIUM [Concomitant]
     Dosage: 10MG PER DAY
     Route: 048
     Dates: start: 20020101
  10. VICODIN [Concomitant]
     Indication: HEADACHE
     Dosage: 1TAB AS REQUIRED
     Route: 048
     Dates: start: 20030101
  11. MYTUSSIN [Concomitant]
     Indication: COUGH
     Dosage: 10MG AS REQUIRED
     Route: 048
     Dates: start: 19990101, end: 20060221
  12. RABEPRAZOLE SODIUM [Concomitant]
     Dosage: 20MG PER DAY
     Route: 048
     Dates: start: 20040101
  13. NIFEREX [Concomitant]
     Dosage: 150MG TWICE PER DAY
     Route: 048
     Dates: start: 20060911
  14. ASCORBIC ACID [Concomitant]
     Indication: VITAMIN SUPPLEMENTATION
     Dosage: 500MG PER DAY
     Route: 048
     Dates: start: 20060911
  15. ESOMEPRAZOLE MAGNESIUM [Concomitant]
     Route: 048
     Dates: start: 20060906, end: 20060911
  16. SIMVASTATIN [Concomitant]
     Route: 048
     Dates: start: 20060906, end: 20060910
  17. DARVOCET [Concomitant]
     Indication: HEADACHE
     Route: 048
     Dates: start: 20060907, end: 20060910
  18. GUIAFENESIN-DM [Concomitant]
     Indication: COUGH
     Dosage: 10ML AS REQUIRED
     Route: 048
     Dates: start: 20060908, end: 20060908

REACTIONS (2)
  - SUBDURAL HAEMATOMA [None]
  - THROMBOCYTOPENIA [None]
